FAERS Safety Report 20636705 (Version 1)
Quarter: 2022Q1

REPORT INFORMATION
  Report Type: Spontaneous
  Country: DE (occurrence: DE)
  Receive Date: 20220325
  Receipt Date: 20220325
  Transmission Date: 20220423
  Serious: Yes (Other)
  Sender: FDA-Public Use
  Company Number: DE-ASPEN-GLO2022DE001465

PATIENT

DRUGS (4)
  1. BUSULFAN [Suspect]
     Active Substance: BUSULFAN
     Indication: Thalassaemia
     Dosage: UNK(16 SINGLE DOSES AT 0.8 MG/KG BODY WEIGHT; 3.2 MG/KG/24 H)
     Route: 065
  2. BUSULFAN [Suspect]
     Active Substance: BUSULFAN
     Indication: Bone marrow conditioning regimen
  3. CLONAZEPAM [Concomitant]
     Active Substance: CLONAZEPAM
     Indication: Thalassaemia
     Dosage: UNK
     Route: 065
  4. URSODIOL [Concomitant]
     Active Substance: URSODIOL
     Indication: Prophylaxis
     Dosage: UNK
     Route: 065

REACTIONS (8)
  - Off label use [Unknown]
  - Febrile neutropenia [Unknown]
  - Deafness [Recovered/Resolved]
  - Gingivitis [Unknown]
  - C-reactive protein increased [Unknown]
  - Pruritus [Unknown]
  - Mucosal inflammation [Unknown]
  - Vertigo [Unknown]
